FAERS Safety Report 10946309 (Version 1)
Quarter: 2015Q1

REPORT INFORMATION
  Report Type: Spontaneous
  Country: US (occurrence: US)
  Receive Date: 20150323
  Receipt Date: 20150323
  Transmission Date: 20150721
  Serious: Yes (Hospitalization, Disabling, Other)
  Sender: FDA-Public Use
  Company Number: US-009507513-0705USA00823

PATIENT
  Sex: Female
  Weight: 56.7 kg

DRUGS (9)
  1. TAMOXIFEN CITRATE. [Concomitant]
     Active Substance: TAMOXIFEN CITRATE
     Indication: BREAST CANCER
     Dosage: 10 MG, BID
     Route: 048
     Dates: start: 2000, end: 2005
  2. COUMADIN [Concomitant]
     Active Substance: WARFARIN SODIUM
     Indication: ATRIAL FIBRILLATION
     Dosage: 4 MG, QD
     Route: 048
     Dates: start: 1998
  3. FOSAMAX [Suspect]
     Active Substance: ALENDRONATE SODIUM
     Indication: FRACTURED SACRUM
  4. MK-9278 [Concomitant]
     Active Substance: VITAMINS
     Dates: start: 1990
  5. FOSAMAX [Suspect]
     Active Substance: ALENDRONATE SODIUM
     Indication: OSTEOPOROSIS
     Dosage: 70  MG, QW
     Route: 048
     Dates: start: 20010223, end: 200508
  6. RAMIPRIL. [Concomitant]
     Active Substance: RAMIPRIL
     Indication: HEART RATE ABNORMAL
     Dates: start: 1998
  7. MK-9359 [Concomitant]
     Indication: HEART RATE ABNORMAL
     Dosage: 50 MG, QD
     Route: 048
     Dates: start: 1998
  8. CALCIUM (UNSPECIFIED) (+) VITAMIN D (UNSPECIFIED) [Concomitant]
     Active Substance: CALCIUM CARBONATE\VITAMIN D
     Dosage: 600/400
     Dates: start: 1990
  9. VITAMIN E [Concomitant]
     Active Substance: .ALPHA.-TOCOPHEROL
     Dosage: UNK MG, UNK
     Dates: start: 1990

REACTIONS (68)
  - Hip arthroplasty [Unknown]
  - Femoral neck fracture [Unknown]
  - Pyrexia [Unknown]
  - Lethargy [Unknown]
  - Tooth extraction [Unknown]
  - Arthropathy [Unknown]
  - Femur fracture [Unknown]
  - Asthenia [Unknown]
  - Incision site haemorrhage [Recovering/Resolving]
  - Mental status changes [Unknown]
  - Blood creatinine increased [Unknown]
  - Depression [Not Recovered/Not Resolved]
  - Fall [Unknown]
  - Hyperlipidaemia [Unknown]
  - Haematuria [Unknown]
  - Diarrhoea [Recovered/Resolved]
  - Surgery [Unknown]
  - Femur fracture [Unknown]
  - Spinal disorder [Unknown]
  - Bone disorder [Unknown]
  - Low turnover osteopathy [Unknown]
  - Haemoglobin decreased [Recovered/Resolved]
  - Osteopenia [Unknown]
  - Trigger finger [Unknown]
  - Gingival disorder [Unknown]
  - Cystocele [Unknown]
  - Depression [Not Recovered/Not Resolved]
  - Balance disorder [Unknown]
  - Mental status changes [Unknown]
  - Hypotension [Recovering/Resolving]
  - Anxiety [Not Recovered/Not Resolved]
  - Urethral prolapse [Unknown]
  - Vaginal haemorrhage [Unknown]
  - Fall [Unknown]
  - Neuropathy peripheral [Unknown]
  - Anxiety [Not Recovered/Not Resolved]
  - Stress fracture [Unknown]
  - Osteomyelitis [Not Recovered/Not Resolved]
  - Vitamin B12 deficiency [Unknown]
  - Fall [Unknown]
  - Nausea [Recovered/Resolved]
  - Sinusitis [Recovered/Resolved]
  - Substance-induced psychotic disorder [Recovered/Resolved]
  - Haematocrit decreased [Recovered/Resolved]
  - Oedema peripheral [Unknown]
  - Osteonecrosis of jaw [Not Recovered/Not Resolved]
  - Vitamin D deficiency [Unknown]
  - Migraine [Unknown]
  - Pain [Unknown]
  - Trigonitis [Unknown]
  - Lumbar spinal stenosis [Unknown]
  - Inflammation [Unknown]
  - Pain in extremity [Not Recovered/Not Resolved]
  - Mental status changes [Recovered/Resolved]
  - Fall [Recovered/Resolved]
  - Femur fracture [Unknown]
  - Muscular weakness [Unknown]
  - Osteoarthritis [Unknown]
  - Urethral prolapse [Unknown]
  - Vomiting [Recovered/Resolved]
  - Dizziness [Recovered/Resolved]
  - Compression fracture [Unknown]
  - Arthropathy [Unknown]
  - International normalised ratio increased [Recovered/Resolved]
  - Haemoglobin decreased [Recovered/Resolved]
  - Haematocrit decreased [Recovered/Resolved]
  - Dysaesthesia [Unknown]
  - Urinary incontinence [Unknown]

NARRATIVE: CASE EVENT DATE: 200103
